FAERS Safety Report 17421282 (Version 1)
Quarter: 2020Q1

REPORT INFORMATION
  Report Type: Spontaneous
  Country: DK (occurrence: DK)
  Receive Date: 20200214
  Receipt Date: 20200214
  Transmission Date: 20200409
  Serious: Yes (Other)
  Sender: FDA-Public Use
  Company Number: NVSC2020DK040244

PATIENT
  Age: 35 Year
  Sex: Female

DRUGS (2)
  1. MAXIDEX [Suspect]
     Active Substance: DEXAMETHASONE
     Indication: IRITIS
     Dosage: STYRKE: 1 MG/ML. VARIERENDE DOSER P? BEGGE ?JNE
     Route: 050
     Dates: start: 20180408, end: 201904
  2. MYDRIACYL [Concomitant]
     Active Substance: TROPICAMIDE
     Indication: EYE INFECTION
     Dosage: 1 %, QD (STYRKE: 1 %. DOSIS: TIL NATTEN I BEGGE ?JNE.)
     Route: 050
     Dates: start: 20180408, end: 20180417

REACTIONS (2)
  - Visual impairment [Recovered/Resolved]
  - Cataract [Recovered/Resolved with Sequelae]

NARRATIVE: CASE EVENT DATE: 201906
